FAERS Safety Report 5858333-8 (Version None)
Quarter: 2008Q3

REPORT INFORMATION
  Report Type: 
  Country: None (occurrence: None)
  Receive Date: 20080826
  Receipt Date: 20080818
  Transmission Date: 20090109
  Serious: Yes (Other)
  Sender: FDA-Public Use
  Company Number: PHHY2008GB12734

PATIENT
  Sex: Female

DRUGS (2)
  1. TEGRETOL [Suspect]
     Dosage: 400 MG, BID
  2. RAMIPRIL [Concomitant]

REACTIONS (2)
  - ERYTHEMA NODOSUM [None]
  - POLYCYTHAEMIA [None]
